FAERS Safety Report 13430041 (Version 2)
Quarter: 2019Q2

REPORT INFORMATION
  Report Type: Spontaneous
  Country: US (occurrence: US)
  Receive Date: 20170412
  Receipt Date: 20190413
  Transmission Date: 20190711
  Serious: Yes (Hospitalization)
  Sender: FDA-Public Use
  Company Number: PHHY2017US049179

PATIENT
  Age: 37 Year
  Sex: Male

DRUGS (2)
  1. VALPROIC ACID. [Suspect]
     Active Substance: VALPROIC ACID
     Indication: PRODUCT USED FOR UNKNOWN INDICATION
     Dosage: 50 DF, UNK
     Route: 065
  2. VENLAFAXINE [Concomitant]
     Active Substance: VENLAFAXINE HYDROCHLORIDE
     Indication: PRODUCT USED FOR UNKNOWN INDICATION
     Dosage: UNK
     Route: 065

REACTIONS (8)
  - Toxicity to various agents [Unknown]
  - Pancreatitis relapsing [Unknown]
  - Abdominal pain [Unknown]
  - Pancreatic pseudocyst [Unknown]
  - Pancreatitis chronic [Unknown]
  - Overdose [Unknown]
  - Mental status changes [Unknown]
  - Vomiting [Unknown]
